FAERS Safety Report 6877838-4 (Version None)
Quarter: 2010Q3

REPORT INFORMATION
  Report Type: 
  Country: None (occurrence: None)
  Receive Date: 20100727
  Receipt Date: 20070730
  Transmission Date: 20110219
  Serious: Yes (Hospitalization, Disabling, Other)
  Sender: FDA-Public Use
  Company Number: US-PFIZER INC-2006014079

PATIENT
  Sex: Male
  Weight: 111.1 kg

DRUGS (10)
  1. CELEBREX [Suspect]
     Indication: PAIN
     Route: 048
     Dates: start: 20000101
  2. VIOXX [Suspect]
     Indication: PAIN
     Route: 048
     Dates: start: 20010401, end: 20030101
  3. COLCHICINE [Concomitant]
     Dates: start: 20010703
  4. HYDROCODONE BITARTRATE [Concomitant]
     Indication: PAIN
     Dates: start: 19990103
  5. IBUPROFEN TABLETS [Concomitant]
     Indication: PAIN
     Dates: start: 19991227, end: 20040129
  6. OXYCODONE [Concomitant]
     Indication: PAIN
     Dates: start: 19991227, end: 20040301
  7. ACETAMINOPHEN [Concomitant]
     Dates: start: 19900101
  8. LISINOPRIL [Concomitant]
     Indication: HYPERTENSION
     Dates: start: 20030106
  9. COZAAR [Concomitant]
     Dates: start: 20020101
  10. CRESTOR [Concomitant]
     Indication: BLOOD CHOLESTEROL INCREASED
     Dates: start: 20010801

REACTIONS (1)
  - MYOCARDIAL INFARCTION [None]
